FAERS Safety Report 18834074 (Version 1)
Quarter: 2021Q1

REPORT INFORMATION
  Report Type: Spontaneous
  Country: US (occurrence: US)
  Receive Date: 20210203
  Receipt Date: 20210203
  Transmission Date: 20210419
  Serious: Yes (Hospitalization)
  Sender: FDA-Public Use
  Company Number: None

PATIENT
  Age: 45 Year
  Sex: Female
  Weight: 56 kg

DRUGS (1)
  1. ALBUMIN [Suspect]
     Active Substance: ALBUMIN HUMAN
     Dosage: ?          OTHER FREQUENCY:1 DOSE;?
     Route: 042

REACTIONS (7)
  - Back pain [None]
  - Tachycardia [None]
  - Chest pain [None]
  - Product quality issue [None]
  - Chills [None]
  - Product contamination [None]
  - Anaphylactoid reaction [None]

NARRATIVE: CASE EVENT DATE: 20210202
